FAERS Safety Report 16354336 (Version 5)
Quarter: 2019Q3

REPORT INFORMATION
  Report Type: Report from Study
  Country: US (occurrence: US)
  Receive Date: 20190524
  Receipt Date: 20190926
  Transmission Date: 20191004
  Serious: Yes (Life-Threatening, Hospitalization)
  Sender: FDA-Public Use
  Company Number: US-JNJFOC-20190530733

PATIENT
  Age: 77 Year
  Sex: Male

DRUGS (19)
  1. IMBRUVICA [Suspect]
     Active Substance: IBRUTINIB
     Indication: CHRONIC LYMPHOCYTIC LEUKAEMIA
     Route: 065
     Dates: start: 20160112, end: 20180423
  2. ELIQUIS [Concomitant]
     Active Substance: APIXABAN
  3. AMBIEN [Concomitant]
     Active Substance: ZOLPIDEM TARTRATE
  4. CEFTRIAXONE. [Concomitant]
     Active Substance: CEFTRIAXONE
     Indication: PNEUMONIA
     Dates: start: 20180303
  5. BUMEX [Concomitant]
     Active Substance: BUMETANIDE
     Route: 048
     Dates: start: 20170511
  6. MAGNESIUM [Concomitant]
     Active Substance: MAGNESIUM
  7. CHLOR-TRIMETON [Concomitant]
     Active Substance: CHLORPHENIRAMINE MALEATE
     Route: 048
     Dates: start: 20170113
  8. FLOMAX [Concomitant]
     Active Substance: TAMSULOSIN HYDROCHLORIDE
  9. METOPROLOL. [Concomitant]
     Active Substance: METOPROLOL
  10. DOXYCYCLINE HYCLATE. [Concomitant]
     Active Substance: DOXYCYCLINE HYCLATE
     Route: 048
     Dates: start: 20170413
  11. AZITHROMYCIN ANHYDROUS. [Concomitant]
     Active Substance: AZITHROMYCIN ANHYDROUS
     Indication: PNEUMONIA
  12. ALLOPURINOL. [Concomitant]
     Active Substance: ALLOPURINOL
  13. KLOR-CON [Concomitant]
     Active Substance: POTASSIUM CHLORIDE
     Route: 048
  14. POTASSIUM [Concomitant]
     Active Substance: POTASSIUM
  15. ROXICODONE [Concomitant]
     Active Substance: OXYCODONE HYDROCHLORIDE
     Route: 048
     Dates: start: 20160525
  16. CALCIUM [Concomitant]
     Active Substance: CALCIUM
  17. SODIUM BICARBONATE. [Concomitant]
     Active Substance: SODIUM BICARBONATE
  18. PHENERGAN [Concomitant]
     Active Substance: PROMETHAZINE HYDROCHLORIDE
     Indication: NAUSEA
     Route: 048
  19. OMEPRAZOLE. [Concomitant]
     Active Substance: OMEPRAZOLE

REACTIONS (4)
  - Sepsis [Recovered/Resolved]
  - Acute respiratory failure [Recovered/Resolved]
  - Pneumonia [Recovered/Resolved]
  - Acute kidney injury [Recovered/Resolved]

NARRATIVE: CASE EVENT DATE: 20180303
